FAERS Safety Report 18048815 (Version 1)
Quarter: 2020Q3

REPORT INFORMATION
  Report Type: Spontaneous
  Country: ES (occurrence: ES)
  Receive Date: 20200721
  Receipt Date: 20200721
  Transmission Date: 20201103
  Serious: Yes (Other)
  Sender: FDA-Public Use
  Company Number: ES-CADILA HEALTHCARE LIMITED-ES-ZYDUS-027198

PATIENT

DRUGS (22)
  1. OMEPRAZOLE. [Suspect]
     Active Substance: OMEPRAZOLE
     Indication: PRODUCT USED FOR UNKNOWN INDICATION
     Dosage: 1 DOSAGE FORM,1 DOSAGE FORMS DAILY; 20 MG,(INTERVAL :1 DAYS)
     Route: 065
     Dates: start: 20160901, end: 20161125
  2. PARACETAMOL W/TRAMADOL [Suspect]
     Active Substance: ACETAMINOPHEN\TRAMADOL
     Indication: PRODUCT USED FOR UNKNOWN INDICATION
     Dosage: 1 DOSAGE FORM,1 DF, TID,(INTERVAL :1 DAYS)
     Route: 065
     Dates: start: 20161118
  3. ENALAPRIL + HYDROCHLOROTHIAZIDE [Suspect]
     Active Substance: ENALAPRIL MALEATE\HYDROCHLOROTHIAZIDE
     Indication: PRODUCT USED FOR UNKNOWN INDICATION
     Dosage: 1 DOSAGE FORM,1 DOSAGE FORMS DAILY; 1 DF ? 20/12.5 MG,(INTERVAL :1 DAYS)
     Route: 065
     Dates: start: 20160901
  4. AMITRIPTYLINE [Suspect]
     Active Substance: AMITRIPTYLINE
     Indication: HEADACHE
     Dosage: 12.5 MILLIGRAM,12.5 MG, QD,(INTERVAL :1 DAYS)
     Route: 065
     Dates: start: 20170509, end: 20170516
  5. GLIBENCLAMIDE [Suspect]
     Active Substance: GLYBURIDE
     Indication: PRODUCT USED FOR UNKNOWN INDICATION
     Dosage: 2 DOSAGE FORMS DAILY;
     Route: 065
  6. AMLODIPINE [Suspect]
     Active Substance: AMLODIPINE BESYLATE
     Indication: PRODUCT USED FOR UNKNOWN INDICATION
     Dosage: 1 DOSAGE FORM,1 DF, QD,(INTERVAL :1 DAYS)
     Route: 065
     Dates: start: 20160901
  7. PARACETAMOL W/TRAMADOL [Suspect]
     Active Substance: ACETAMINOPHEN\TRAMADOL
     Indication: PRODUCT USED FOR UNKNOWN INDICATION
     Dosage: 1 DOSAGE FORM,3 DOSAGE FORMS DAILY; 1 DF ? 37.5/325 MG,(INTERVAL :1 DAYS)
     Route: 065
     Dates: start: 20161118
  8. TEPAZEPAM [Suspect]
     Active Substance: DIAZEPAM\SULPIRIDE
     Indication: PRODUCT USED FOR UNKNOWN INDICATION
     Dosage: QD (),(INTERVAL :1 DAYS)
     Route: 065
     Dates: start: 20160901
  9. METOCLOPRAMIDE. [Concomitant]
     Active Substance: METOCLOPRAMIDE
     Indication: PRODUCT USED FOR UNKNOWN INDICATION
     Dosage: 1 WEEK TREATMENT ()
     Route: 065
     Dates: start: 20161125
  10. AMITRIPTYLINE [Suspect]
     Active Substance: AMITRIPTYLINE
     Indication: HEADACHE
     Dosage: 25 MILLIGRAM,25 MILLIGRAM DAILY,(INTERVAL :1 DAYS)
     Route: 065
     Dates: start: 20170516
  11. LORMETAZEPAM [Suspect]
     Active Substance: LORMETAZEPAM
     Indication: PRODUCT USED FOR UNKNOWN INDICATION
     Dosage: 1 DOSAGE FORM,1 DF, QD,(INTERVAL :1 DAYS)
     Route: 065
     Dates: start: 20160901, end: 20160930
  12. TOPIRAMATE. [Suspect]
     Active Substance: TOPIRAMATE
     Indication: PRODUCT USED FOR UNKNOWN INDICATION
     Dosage: 1 DOSAGE FORM,1 DOSAGE FORMS DAILY; 50 MG,(INTERVAL :1 DAYS)
     Route: 065
     Dates: start: 20170420, end: 20170509
  13. AMITRIPTYLINE [Suspect]
     Active Substance: AMITRIPTYLINE
     Indication: HEADACHE
     Dosage: 5 MILLIGRAM,QD,(INTERVAL :1 DAYS)
     Route: 065
     Dates: start: 20161118
  14. NAPROXEN. [Suspect]
     Active Substance: NAPROXEN
     Indication: PRODUCT USED FOR UNKNOWN INDICATION
     Dosage: 1 DOSAGE FORM,1 DF, BID,(INTERVAL :1 DAYS)
     Route: 065
     Dates: start: 20160901, end: 20161118
  15. ESCITALOPRAM [Suspect]
     Active Substance: ESCITALOPRAM OXALATE
     Indication: PRODUCT USED FOR UNKNOWN INDICATION
     Dosage: 1 DOSAGE FORM,1 DOSAGE FORMS DAILY; 10 MG,(INTERVAL :1 DAYS)
     Route: 065
     Dates: start: 20160901
  16. SIMVASTATIN. [Suspect]
     Active Substance: SIMVASTATIN
     Indication: PRODUCT USED FOR UNKNOWN INDICATION
     Dosage: 20 MILLIGRAM,20 MG, UNK,(INTERVAL :1 DAYS)
     Route: 065
     Dates: start: 20170420
  17. PARACETAMOL [Suspect]
     Active Substance: ACETAMINOPHEN
     Indication: PRODUCT USED FOR UNKNOWN INDICATION
     Dosage: 1 DOSAGE FORM,(INTERVAL :1 DAYS)
     Route: 065
     Dates: start: 20160901, end: 20161118
  18. DIAZEPAM. [Suspect]
     Active Substance: DIAZEPAM
     Indication: PRODUCT USED FOR UNKNOWN INDICATION
     Dosage: .5 DOSAGE FORM,0.5 DOSAGE FORMS DAILY; 5 MG,(INTERVAL :1 DAYS)
     Dates: start: 20160930, end: 20161021
  19. GLIBENCLAMIDE [Suspect]
     Active Substance: GLYBURIDE
     Indication: PRODUCT USED FOR UNKNOWN INDICATION
     Dosage: 1 DOSAGE FORM,2 DOSAGE FORMS DAILY;,(INTERVAL :1 DAYS)
     Route: 065
     Dates: start: 20160901
  20. SIMVASTATIN. [Suspect]
     Active Substance: SIMVASTATIN
     Indication: PRODUCT USED FOR UNKNOWN INDICATION
     Dosage: 1 DOSAGE FORM,1 DOSAGE FORMS DAILY; 40 MG,(INTERVAL :1 DAYS)
     Route: 065
     Dates: start: 20160901, end: 20170420
  21. TOPIRAMATE. [Suspect]
     Active Substance: TOPIRAMATE
     Indication: PRODUCT USED FOR UNKNOWN INDICATION
     Dosage: .5 DOSAGE FORM,0.5 DF, QD,(INTERVAL :1 DAYS)
     Route: 065
     Dates: start: 20170203, end: 20170420
  22. DIAZEPAM. [Suspect]
     Active Substance: DIAZEPAM
     Indication: PRODUCT USED FOR UNKNOWN INDICATION
     Dosage: UNK (),(INTERVAL :1 DAYS)
     Dates: start: 20160901

REACTIONS (9)
  - Somnolence [Recovering/Resolving]
  - Headache [Not Recovered/Not Resolved]
  - Treatment noncompliance [Unknown]
  - Insomnia [Recovering/Resolving]
  - Drug ineffective [Unknown]
  - Pain in extremity [Recovered/Resolved]
  - Fall [Unknown]
  - Depression [Recovering/Resolving]
  - Dizziness [Recovering/Resolving]

NARRATIVE: CASE EVENT DATE: 201610
